FAERS Safety Report 10625876 (Version 1)
Quarter: 2014Q4

REPORT INFORMATION
  Report Type: Spontaneous
  Country: FR (occurrence: FR)
  Receive Date: 20141204
  Receipt Date: 20141204
  Transmission Date: 20150529
  Serious: Yes (Hospitalization)
  Sender: FDA-Public Use
  Company Number: FR-SA-2014SA164120

PATIENT
  Age: 86 Year
  Sex: Female

DRUGS (2)
  1. PREVISCAN [Concomitant]
     Active Substance: FLUINDIONE
     Dates: end: 20140404
  2. LOVENOX [Suspect]
     Active Substance: ENOXAPARIN SODIUM
     Route: 058
     Dates: start: 20140404, end: 20140414

REACTIONS (2)
  - Heparin-induced thrombocytopenia [Recovered/Resolved]
  - Phlebitis [Recovering/Resolving]

NARRATIVE: CASE EVENT DATE: 20140408
